FAERS Safety Report 16733755 (Version 1)
Quarter: 2019Q3

REPORT INFORMATION
  Report Type: Spontaneous
  Country: CA (occurrence: CA)
  Receive Date: 20190823
  Receipt Date: 20190823
  Transmission Date: 20191005
  Serious: Yes (Other)
  Sender: FDA-Public Use
  Company Number: CA-TEVA-2019-CA-1095308

PATIENT
  Age: 56 Year
  Sex: Female

DRUGS (10)
  1. APO-PREDNISONE [Suspect]
     Active Substance: PREDNISONE
     Indication: RHEUMATOID ARTHRITIS
     Route: 065
  2. HUMIRA [Suspect]
     Active Substance: ADALIMUMAB
     Indication: RHEUMATOID ARTHRITIS
     Route: 058
  3. HYDROXYCHLOROQUINE SULFATE. [Suspect]
     Active Substance: HYDROXYCHLOROQUINE SULFATE
     Indication: RHEUMATOID ARTHRITIS
     Route: 065
  4. METHOTREXATE. [Suspect]
     Active Substance: METHOTREXATE
     Indication: RHEUMATOID ARTHRITIS
     Route: 065
  5. ENBREL [Suspect]
     Active Substance: ETANERCEPT
     Indication: RHEUMATOID ARTHRITIS
     Route: 058
  6. XELJANZ [Suspect]
     Active Substance: TOFACITINIB CITRATE
     Indication: RHEUMATOID ARTHRITIS
     Dosage: 10 MILLIGRAM DAILY;
     Route: 048
  7. ARAVA [Concomitant]
     Active Substance: LEFLUNOMIDE
     Indication: PRODUCT USED FOR UNKNOWN INDICATION
  8. PREDNISONE. [Concomitant]
     Active Substance: PREDNISONE
     Indication: PRODUCT USED FOR UNKNOWN INDICATION
  9. RITUXAN [Suspect]
     Active Substance: RITUXIMAB
     Indication: RHEUMATOID ARTHRITIS
     Route: 042
  10. ACTEMRA [Suspect]
     Active Substance: TOCILIZUMAB
     Indication: RHEUMATOID ARTHRITIS
     Route: 065

REACTIONS (24)
  - Dysphagia [Unknown]
  - Hypersensitivity [Unknown]
  - Injection site bruising [Unknown]
  - Swelling [Unknown]
  - Back pain [Unknown]
  - Blood pressure increased [Unknown]
  - Drug ineffective [Unknown]
  - Gait disturbance [Unknown]
  - Haemorrhage [Unknown]
  - Pain [Unknown]
  - Abdominal discomfort [Unknown]
  - Osteoporosis [Unknown]
  - Rash [Unknown]
  - Contusion [Unknown]
  - Femur fracture [Unknown]
  - Crying [Unknown]
  - Intervertebral disc degeneration [Unknown]
  - Injection site hypersensitivity [Unknown]
  - Oedema peripheral [Unknown]
  - Pruritus generalised [Unknown]
  - Bone disorder [Unknown]
  - Immune system disorder [Unknown]
  - Injection site erythema [Unknown]
  - Osteoarthritis [Unknown]
